FAERS Safety Report 9077886 (Version 1)
Quarter: 2013Q1

REPORT INFORMATION
  Report Type: Report from Study
  Country: US (occurrence: US)
  Receive Date: 20130130
  Receipt Date: 20130130
  Transmission Date: 20140127
  Serious: No
  Sender: FDA-Public Use
  Company Number: US-ABBOTT-12P-163-0954612-00

PATIENT
  Sex: Female

DRUGS (2)
  1. HUMIRA [Suspect]
     Dosage: DAY 1
     Route: 058
     Dates: start: 20120614
  2. HUMIRA [Suspect]
     Dosage: DAY 15
     Route: 058

REACTIONS (1)
  - Injection site pain [Unknown]
